FAERS Safety Report 26035187 (Version 6)
Quarter: 2025Q4

REPORT INFORMATION
  Report Type: Report from Study
  Country: US (occurrence: US)
  Receive Date: 20251112
  Receipt Date: 20251217
  Transmission Date: 20260117
  Serious: Yes (Death, Life-Threatening, Hospitalization, Other)
  Sender: JOHNSON AND JOHNSON
  Company Number: US-JNJFOC-20251146754

PATIENT
  Age: 45 Year
  Sex: Female
  Weight: 98 kg

DRUGS (1)
  1. CILTACABTAGENE AUTOLEUCEL [Suspect]
     Active Substance: CILTACABTAGENE AUTOLEUCEL
     Indication: Plasma cell myeloma
     Dosage: 0.7
     Route: 042
     Dates: start: 20250922, end: 20250922

REACTIONS (5)
  - Multiple organ dysfunction syndrome [Fatal]
  - Osteomyelitis [Not Recovered/Not Resolved]
  - Fungal infection [Not Recovered/Not Resolved]
  - Neutropenia [Not Recovered/Not Resolved]
  - Sialoadenitis [Unknown]

NARRATIVE: CASE EVENT DATE: 20251031
